FAERS Safety Report 4389865-X (Version None)
Quarter: 2004Q2

REPORT INFORMATION
  Report Type: 
  Country: None (occurrence: None)
  Receive Date: 20040630
  Receipt Date: 20040630
  Transmission Date: 20050107
  Serious: Yes (Death)
  Sender: FDA-Public Use
  Company Number: None

PATIENT
  Sex: Female
  Weight: 48.1 kg

DRUGS (8)
  1. METHOTREXATE [Suspect]
     Indication: ACUTE LYMPHOCYTIC LEUKAEMIA
     Dates: start: 20040419, end: 20040528
  2. CYCLOPHOSPHAMIDE [Suspect]
     Indication: ACUTE LYMPHOCYTIC LEUKAEMIA
     Dates: start: 20040419, end: 20040601
  3. ETOPOSIDE [Concomitant]
  4. VINCRISTINE [Concomitant]
  5. CYTARABINE [Concomitant]
  6. PREDNISONE [Concomitant]
  7. ONCASPAR [Concomitant]
  8. DOXORUBICIN HCL [Concomitant]

REACTIONS (2)
  - LEUKAEMIA [None]
  - MALIGNANT NEOPLASM PROGRESSION [None]
